FAERS Safety Report 21054645 (Version 1)
Quarter: 2022Q3

REPORT INFORMATION
  Report Type: Spontaneous
  Country: CO (occurrence: CO)
  Receive Date: 20220707
  Receipt Date: 20220707
  Transmission Date: 20221026
  Serious: Yes (Other)
  Sender: FDA-Public Use
  Company Number: CO-PFIZER INC-PV202200016505

PATIENT
  Age: 62 Year
  Sex: Female

DRUGS (1)
  1. XELJANZ XR [Suspect]
     Active Substance: TOFACITINIB CITRATE
     Dosage: 11 MG, UNSPECIFIED FREQUENCY
     Route: 048
     Dates: end: 202201

REACTIONS (3)
  - Surgery [Recovered/Resolved]
  - Wound infection [Not Recovered/Not Resolved]
  - Wound [Not Recovered/Not Resolved]
